FAERS Safety Report 19251693 (Version 1)
Quarter: 2021Q2

REPORT INFORMATION
  Report Type: Spontaneous
  Country: DE (occurrence: DE)
  Receive Date: 20210512
  Receipt Date: 20210512
  Transmission Date: 20210717
  Serious: Yes (Other)
  Sender: FDA-Public Use
  Company Number: NVSC2021DE100946

PATIENT
  Age: 52 Year
  Sex: Female

DRUGS (2)
  1. QUETIAPIN ? 1 A PHARMA 25 MG FILMTABLETTEN [Suspect]
     Active Substance: QUETIAPINE
     Indication: ANXIETY
     Dosage: 25 MG, UNKNOWN
     Route: 065
     Dates: start: 2020
  2. MIRTAZAPINE. [Concomitant]
     Active Substance: MIRTAZAPINE
     Indication: PRODUCT USED FOR UNKNOWN INDICATION
     Dosage: UNK
     Route: 065

REACTIONS (1)
  - Arrhythmia [Unknown]
